FAERS Safety Report 4767281-6 (Version None)
Quarter: 2005Q3

REPORT INFORMATION
  Report Type: 
  Country: None (occurrence: None)
  Receive Date: 20050913
  Receipt Date: 20050908
  Transmission Date: 20060218
  Serious: Yes (Other)
  Sender: FDA-Public Use
  Company Number: US-GLAXOSMITHKLINE-A0573497A

PATIENT
  Age: 57 Year
  Sex: Female

DRUGS (2)
  1. WELLBUTRIN [Suspect]
     Indication: DEPRESSION
     Dosage: 150MG PER DAY
     Route: 048
     Dates: start: 20050830
  2. VICODIN ES [Concomitant]

REACTIONS (9)
  - ABDOMINAL PAIN UPPER [None]
  - CONFUSIONAL STATE [None]
  - COUGH [None]
  - DIZZINESS [None]
  - ERUCTATION [None]
  - HYPERHIDROSIS [None]
  - NAUSEA [None]
  - STRESS INCONTINENCE [None]
  - THERAPEUTIC RESPONSE UNEXPECTED [None]
